FAERS Safety Report 5140386-6 (Version None)
Quarter: 2006Q4

REPORT INFORMATION
  Report Type: 
  Country: None (occurrence: None)
  Receive Date: 20061031
  Receipt Date: 20061023
  Transmission Date: 20070319
  Serious: Yes (Death, Hospitalization)
  Sender: FDA-Public Use
  Company Number: US-ELI_LILLY_AND_COMPANY-US200610004235

PATIENT
  Age: 88 Year
  Sex: Female

DRUGS (2)
  1. FORTEO [Suspect]
     Indication: OSTEOPOROSIS
     Dosage: UNK, UNK
     Dates: start: 20050901, end: 20060730
  2. PLAVIX                                  /UNK/ [Concomitant]
     Dates: end: 20060730

REACTIONS (7)
  - ASTHENIA [None]
  - BACK PAIN [None]
  - BEDRIDDEN [None]
  - CARDIAC FAILURE CONGESTIVE [None]
  - FALL [None]
  - GENERAL PHYSICAL HEALTH DETERIORATION [None]
  - SPINAL FRACTURE [None]
